FAERS Safety Report 16056643 (Version 1)
Quarter: 2019Q2

REPORT INFORMATION
  Report Type: Spontaneous
  Country: US (occurrence: US)
  Receive Date: 20190310
  Receipt Date: 20190310
  Transmission Date: 20190711
  Serious: No
  Sender: FDA-Public Use
  Company Number: None

PATIENT
  Age: 8 Year
  Sex: Male
  Weight: 23 kg

DRUGS (3)
  1. OSELTAMIVIR PHOSPHATE FOR ORAL SUSPENSION 6MG/ML [Suspect]
     Active Substance: OSELTAMIVIR PHOSPHATE
     Indication: INFLUENZA
     Dosage: ?          QUANTITY:10 MLS;?
     Route: 048
     Dates: start: 20190309, end: 20190309
  2. IBUPROFEN. [Concomitant]
     Active Substance: IBUPROFEN
  3. PARACETAMOL [Concomitant]
     Active Substance: ACETAMINOPHEN

REACTIONS (2)
  - Vomiting [None]
  - Feeling abnormal [None]

NARRATIVE: CASE EVENT DATE: 20190309
